FAERS Safety Report 7905885-X (Version None)
Quarter: 2011Q4

REPORT INFORMATION
  Report Type: 
  Country: None (occurrence: None)
  Receive Date: 20111110
  Receipt Date: 20111107
  Transmission Date: 20120403
  Serious: No
  Sender: FDA-Public Use
  Company Number: US-PFIZER INC-2011271933

PATIENT

DRUGS (2)
  1. TOVIAZ [Suspect]
     Dosage: 4 MG, 1X/DAY
  2. TOVIAZ [Suspect]
     Dosage: 4 MG, EVERY OTHER DAY

REACTIONS (1)
  - MICTURITION DISORDER [None]
